FAERS Safety Report 18987168 (Version 5)
Quarter: 2021Q2

REPORT INFORMATION
  Report Type: Spontaneous
  Country: DK (occurrence: DK)
  Receive Date: 20210309
  Receipt Date: 20210602
  Transmission Date: 20210717
  Serious: Yes (Death, Hospitalization, Other)
  Sender: FDA-Public Use
  Company Number: DK-ACCORD-218959

PATIENT
  Age: 75 Year
  Sex: Female
  Weight: 59 kg

DRUGS (52)
  1. DIAZEPAM. [Concomitant]
     Active Substance: DIAZEPAM
     Dates: start: 20200710, end: 20210302
  2. SULFAMETHOXAZOLE/TRIMETHOPRIM [Concomitant]
     Active Substance: SULFAMETHOXAZOLE\TRIMETHOPRIM
     Dates: start: 20210106, end: 20210226
  3. VALACICLOVIR [Concomitant]
     Active Substance: VALACYCLOVIR HYDROCHLORIDE
     Dates: start: 20210205, end: 20210210
  4. GEMCITABINE/GEMCITABINE HYDROCHLORIDE [Suspect]
     Active Substance: GEMCITABINE\GEMCITABINE HYDROCHLORIDE
     Indication: DIFFUSE LARGE B-CELL LYMPHOMA STAGE IV
     Dosage: SONGLE
     Route: 042
     Dates: start: 20201130, end: 20201130
  5. GENTAMICIN. [Concomitant]
     Active Substance: GENTAMICIN
     Dosage: 280 MG ONCE?DAILY
     Route: 042
     Dates: start: 20210209, end: 20210224
  6. FOSCARNET [Concomitant]
     Active Substance: FOSCARNET
     Dates: start: 20210118, end: 20210121
  7. FUROSEMIDE. [Concomitant]
     Active Substance: FUROSEMIDE
     Dates: start: 20201216, end: 20210228
  8. LINEZOLID. [Concomitant]
     Active Substance: LINEZOLID
     Dates: start: 20210111, end: 20210120
  9. PIPERACILLIN/TAZOBACTAM [Concomitant]
     Active Substance: PIPERACILLIN SODIUM\TAZOBACTAM SODIUM
     Dates: start: 20210111, end: 20210120
  10. FILGRASTIM [Concomitant]
     Active Substance: FILGRASTIM
     Dates: start: 20210210, end: 20210214
  11. IMMUNOGLOBULIN [Concomitant]
     Dates: start: 20210213, end: 20210213
  12. CETIRIZINE [Concomitant]
     Active Substance: CETIRIZINE HYDROCHLORIDE
     Dates: start: 20201130, end: 20210203
  13. EPCORITAMAB. [Suspect]
     Active Substance: EPCORITAMAB
     Indication: DIFFUSE LARGE B-CELL LYMPHOMA STAGE IV
     Route: 058
     Dates: start: 20201207, end: 20201207
  14. VANCOMYCIN [Concomitant]
     Active Substance: VANCOMYCIN
     Dates: start: 20210106, end: 20210116
  15. EPCORITAMAB. [Suspect]
     Active Substance: EPCORITAMAB
     Indication: DIFFUSE LARGE B-CELL LYMPHOMA STAGE IV
     Route: 058
     Dates: start: 20201130, end: 20201130
  16. GEMCITABINE/GEMCITABINE HYDROCHLORIDE [Suspect]
     Active Substance: GEMCITABINE\GEMCITABINE HYDROCHLORIDE
     Indication: DIFFUSE LARGE B-CELL LYMPHOMA STAGE IV
     Dosage: SONGLE
     Route: 042
     Dates: start: 20210106, end: 20210106
  17. ALENDRONIC ACID [Concomitant]
     Active Substance: ALENDRONIC ACID
     Dates: start: 20150602, end: 20210226
  18. DAPTOMYCIN. [Concomitant]
     Active Substance: DAPTOMYCIN
     Dates: start: 20210111, end: 20210120
  19. MACROGOL/MACROGOL STEARATE [Concomitant]
     Active Substance: POLYETHYLENE GLYCOLS
     Dates: start: 20190216, end: 20210226
  20. PANTOPRAZOLE [Concomitant]
     Active Substance: PANTOPRAZOLE
     Dates: start: 20180903, end: 20210226
  21. VALGANCICLOVIR/VALGANCICLOVIR HYDROCHLORIDE [Concomitant]
     Active Substance: VALGANCICLOVIR
     Dates: start: 20210122, end: 20210204
  22. ACICLOVIR [Concomitant]
     Active Substance: ACYCLOVIR
     Dates: start: 20210211, end: 20210217
  23. CASPOFUNGIN [Concomitant]
     Active Substance: CASPOFUNGIN
     Dates: start: 20210222, end: 20210226
  24. PIPERACILLIN/TAZOBACTAM [Concomitant]
     Active Substance: PIPERACILLIN SODIUM\TAZOBACTAM SODIUM
     Dosage: 12/1.5 G, CONTINUOUS
     Route: 042
     Dates: start: 20210130, end: 20210226
  25. MIRTAZAPINE. [Concomitant]
     Active Substance: MIRTAZAPINE
     Dates: start: 20180621, end: 20210228
  26. OXALIPLATIN. [Suspect]
     Active Substance: OXALIPLATIN
     Indication: DIFFUSE LARGE B-CELL LYMPHOMA STAGE IV
     Dosage: SINGLE
     Route: 042
     Dates: start: 20210203, end: 20210203
  27. VANCOMYCIN [Concomitant]
     Active Substance: VANCOMYCIN
     Dates: start: 20210106, end: 20210228
  28. EPCORITAMAB. [Suspect]
     Active Substance: EPCORITAMAB
     Indication: DIFFUSE LARGE B-CELL LYMPHOMA STAGE IV
     Dosage: PRIMING DOSE
     Route: 058
     Dates: start: 20210106, end: 20210106
  29. GABAPENTIN. [Concomitant]
     Active Substance: GABAPENTIN
     Dates: start: 20190309, end: 20210301
  30. GANCICLOVIR. [Concomitant]
     Active Substance: GANCICLOVIR
     Dates: start: 20210114, end: 20210118
  31. GENTAMICIN. [Concomitant]
     Active Substance: GENTAMICIN
     Dates: start: 20210111, end: 20210121
  32. CETIRIZINE [Concomitant]
     Active Substance: CETIRIZINE HYDROCHLORIDE
     Dates: start: 20201130, end: 20210203
  33. PARACETAMOL [Concomitant]
     Active Substance: ACETAMINOPHEN
     Dates: start: 20201130, end: 20210203
  34. SODIUM PICOSULFATE [Concomitant]
     Active Substance: SODIUM PICOSULFATE
     Dates: start: 20210210, end: 20210226
  35. EPCORITAMAB. [Suspect]
     Active Substance: EPCORITAMAB
     Indication: DIFFUSE LARGE B-CELL LYMPHOMA STAGE IV
     Route: 058
     Dates: start: 20210125, end: 20210125
  36. GEMCITABINE/GEMCITABINE HYDROCHLORIDE [Suspect]
     Active Substance: GEMCITABINE\GEMCITABINE HYDROCHLORIDE
     Indication: DIFFUSE LARGE B-CELL LYMPHOMA STAGE IV
     Dosage: SONGLE
     Route: 042
     Dates: start: 20210203
  37. OXALIPLATIN. [Suspect]
     Active Substance: OXALIPLATIN
     Indication: DIFFUSE LARGE B-CELL LYMPHOMA STAGE IV
     Dosage: SINGLE
     Route: 042
     Dates: start: 20210106, end: 20210106
  38. DEXAMETHASONE. [Concomitant]
     Active Substance: DEXAMETHASONE
     Dates: start: 20210113, end: 20210117
  39. FLUCONAZOLE. [Concomitant]
     Active Substance: FLUCONAZOLE
     Dates: start: 20201205, end: 20210226
  40. MAGNESIUM [Concomitant]
     Active Substance: MAGNESIUM
     Dates: start: 20210103, end: 20210226
  41. OXYCODONE [Concomitant]
     Active Substance: OXYCODONE
     Dates: start: 20201122, end: 20210302
  42. GEMCITABINE/GEMCITABINE HYDROCHLORIDE [Suspect]
     Active Substance: GEMCITABINE\GEMCITABINE HYDROCHLORIDE
     Indication: DIFFUSE LARGE B-CELL LYMPHOMA STAGE IV
     Dosage: SONGLE
     Route: 042
     Dates: start: 20210203, end: 20210203
  43. OXALIPLATIN. [Suspect]
     Active Substance: OXALIPLATIN
     Indication: DIFFUSE LARGE B-CELL LYMPHOMA STAGE IV
     Dosage: SINGLE
     Route: 042
     Dates: start: 20201130, end: 20201130
  44. EPCORITAMAB. [Suspect]
     Active Substance: EPCORITAMAB
     Indication: DIFFUSE LARGE B-CELL LYMPHOMA STAGE IV
     Route: 058
     Dates: start: 20210203, end: 20210226
  45. POTASSIUM [Concomitant]
     Active Substance: POTASSIUM
     Dates: start: 20181011, end: 20210226
  46. LAMOTRIGINE. [Concomitant]
     Active Substance: LAMOTRIGINE
     Dates: start: 20150702, end: 20210301
  47. SODIUM PICOSULFATE [Concomitant]
     Active Substance: SODIUM PICOSULFATE
     Dates: start: 20200210, end: 20210226
  48. PREDNISOLONE. [Concomitant]
     Active Substance: PREDNISOLONE
     Dates: start: 20201130, end: 20210209
  49. METRONIDAZOLE. [Concomitant]
     Active Substance: METRONIDAZOLE
     Dates: start: 20210222, end: 20210226
  50. GEMCITABINE/GEMCITABINE HYDROCHLORIDE [Suspect]
     Active Substance: GEMCITABINE\GEMCITABINE HYDROCHLORIDE
     Indication: DIFFUSE LARGE B-CELL LYMPHOMA STAGE IV
     Dosage: SONGLE
     Route: 042
     Dates: start: 20201214, end: 20201214
  51. OXALIPLATIN. [Suspect]
     Active Substance: OXALIPLATIN
     Indication: DIFFUSE LARGE B-CELL LYMPHOMA STAGE IV
     Dosage: SINGLE
     Route: 042
     Dates: start: 20201214, end: 20201214
  52. EPCORITAMAB. [Suspect]
     Active Substance: EPCORITAMAB
     Indication: DIFFUSE LARGE B-CELL LYMPHOMA STAGE IV
     Route: 058
     Dates: start: 20201214, end: 20201221

REACTIONS (4)
  - Immune effector cell-associated neurotoxicity syndrome [Recovered/Resolved]
  - Bronchopulmonary aspergillosis [Fatal]
  - Off label use [Unknown]
  - Pyrexia [Recovered/Resolved]

NARRATIVE: CASE EVENT DATE: 20210130
